FAERS Safety Report 17962295 (Version 1)
Quarter: 2020Q2

REPORT INFORMATION
  Report Type: Spontaneous
  Country: NL (occurrence: NL)
  Receive Date: 20200630
  Receipt Date: 20200630
  Transmission Date: 20200714
  Serious: Yes (Life-Threatening, Disabling)
  Sender: FDA-Public Use
  Company Number: NL-TEVA-2020-NL-1792618

PATIENT
  Sex: Male

DRUGS (7)
  1. MOGADON [Concomitant]
     Active Substance: NITRAZEPAM
     Dosage: THERAPY START DATE: ASKED BUT UNKNOWN, THERAPY END DATE: ASKED BUT UNKNOWN, USE OVER 35 YEARS
  2. METFORMINE [Concomitant]
     Active Substance: METFORMIN HYDROCHLORIDE
     Dosage: USE OVER 35 YEARS, THERAPY START DATE: ASKED BUT UNKNOWN, THERAPY END DATE: ASKED BUT UNKNOWN
  3. HALDOL [Concomitant]
     Active Substance: HALOPERIDOL
     Dosage: THERAPY START DATE: ASKED BUT UNKNOWN, THERAPY END DATE: ASKED BUT UNKNOWN
  4. NATRIUMVALPROAAT 300MGVALPROINEZUUR TABLET MSR 300MG [Suspect]
     Active Substance: VALPROATE SODIUM
     Indication: EPILEPSY
     Dosage: 300 MG, THERAPY END DATE: ASKED BUT UNKNOWN
     Dates: start: 2005
  5. CISORDINOL 10MG [Concomitant]
     Dosage: THERAPY END DATE: ASKED BUT UNKNOWN
     Dates: start: 2014
  6. TEMAZEPAM. [Concomitant]
     Active Substance: TEMAZEPAM
     Dosage: USE OVER 35 YEARS, THERAPY START DATE: ASKED BUT UNKNOWN, THERAPY END DATE: ASKED BUT UNKNOWN
  7. SERESTA [Concomitant]
     Active Substance: OXAZEPAM
     Dosage: USE OVER 35 YEARS, THERAPY START DATE: ASKED BUT UNKNOWN, THERAPY END DATE: ASKED BUT UNKNOWN

REACTIONS (3)
  - Diarrhoea [Not Recovered/Not Resolved]
  - Restless legs syndrome [Not Recovered/Not Resolved]
  - Weight increased [Not Recovered/Not Resolved]
